FAERS Safety Report 6146429-5 (Version None)
Quarter: 2009Q2

REPORT INFORMATION
  Report Type: 
  Country: None (occurrence: None)
  Receive Date: 20090407
  Receipt Date: 20090331
  Transmission Date: 20091009
  Serious: Yes (Hospitalization, Congenital Anomaly)
  Sender: FDA-Public Use
  Company Number: A0679423A

PATIENT
  Sex: Female

DRUGS (4)
  1. PAXIL CR [Suspect]
     Indication: DEPRESSION
     Dosage: 25MG PER DAY
     Dates: start: 20030821, end: 20050101
  2. LEVOXYL [Concomitant]
     Indication: THYROID DISORDER
     Dosage: 1.25MG PER DAY
     Dates: start: 19820101
  3. AMBIEN [Concomitant]
  4. XANAX [Concomitant]

REACTIONS (9)
  - CARDIAC FAILURE CONGESTIVE [None]
  - CONGENITAL ANOMALY [None]
  - CONGENITAL AORTIC STENOSIS [None]
  - DRUG EXPOSURE DURING PREGNANCY [None]
  - FAILURE TO THRIVE [None]
  - MATERNAL DRUGS AFFECTING FOETUS [None]
  - MITRAL VALVE DISEASE [None]
  - PERICARDIAL EFFUSION [None]
  - VENTRICULAR SEPTAL DEFECT [None]
